FAERS Safety Report 21862698 (Version 10)
Quarter: 2024Q1

REPORT INFORMATION
  Report Type: Report from Study
  Country: US (occurrence: US)
  Receive Date: 20230114
  Receipt Date: 20240313
  Transmission Date: 20240410
  Serious: Yes (Other)
  Sender: FDA-Public Use
  Company Number: US-002147023-NVSC2023US008631

PATIENT
  Age: 49 Year
  Sex: Female

DRUGS (13)
  1. KESIMPTA [Suspect]
     Active Substance: OFATUMUMAB
     Indication: Multiple sclerosis
     Dosage: UNK
     Route: 065
     Dates: start: 20230110
  2. KESIMPTA [Suspect]
     Active Substance: OFATUMUMAB
     Dosage: 20 MG, QMO (MONTHLY STARTING AT WEEK 4 AS DIRECTED)
     Route: 058
  3. ESTRADIOL [Concomitant]
     Active Substance: ESTRADIOL
     Indication: Product used for unknown indication
     Dosage: UNK
     Route: 065
  4. PRISTIQ EXTENDED-RELEASE [Concomitant]
     Active Substance: DESVENLAFAXINE SUCCINATE
     Indication: Product used for unknown indication
     Dosage: UNK
     Route: 065
  5. ADDERALL [Concomitant]
     Active Substance: AMPHETAMINE ASPARTATE\AMPHETAMINE SULFATE\DEXTROAMPHETAMINE SACCHARATE\DEXTROAMPHETAMINE SULFATE
     Indication: Product used for unknown indication
     Dosage: UNK
     Route: 065
  6. VITAMIN D3 [Concomitant]
     Active Substance: CHOLECALCIFEROL
     Indication: Product used for unknown indication
     Dosage: UNK
     Route: 065
  7. VITAMIN B12 [Concomitant]
     Active Substance: CYANOCOBALAMIN
     Indication: Product used for unknown indication
     Dosage: UNK
     Route: 065
  8. TOPIRAMATE [Concomitant]
     Active Substance: TOPIRAMATE
     Indication: Product used for unknown indication
     Dosage: UNK (TROKENDI XR)
     Route: 065
  9. MAGNESIUM [Concomitant]
     Active Substance: MAGNESIUM
     Indication: Product used for unknown indication
     Dosage: UNK
     Route: 065
  10. VITAMIN B2 [Concomitant]
     Active Substance: RIBOFLAVIN
     Indication: Product used for unknown indication
     Dosage: UNK
     Route: 065
  11. ALPHA LIPOIC ACID [Concomitant]
     Active Substance: .ALPHA.-LIPOIC ACID
     Indication: Product used for unknown indication
     Dosage: UNK
     Route: 065
  12. TYLENOL [Concomitant]
     Active Substance: ACETAMINOPHEN
     Indication: Premedication
     Dosage: UNK (PRE MEDICATION)
     Route: 065
  13. ADVIL [Concomitant]
     Active Substance: IBUPROFEN
     Indication: Premedication
     Dosage: UNK (PRE MEDICATION)
     Route: 065

REACTIONS (16)
  - Multiple sclerosis relapse [Unknown]
  - Neuropathy peripheral [Unknown]
  - Hypoaesthesia [Unknown]
  - Paraesthesia [Unknown]
  - Headache [Not Recovered/Not Resolved]
  - Post lumbar puncture syndrome [Unknown]
  - Migraine [Not Recovered/Not Resolved]
  - Fatigue [Unknown]
  - Vertigo [Unknown]
  - Brain fog [Unknown]
  - Memory impairment [Unknown]
  - Tremor [Unknown]
  - Nervousness [Recovering/Resolving]
  - Malaise [Recovering/Resolving]
  - Chills [Recovering/Resolving]
  - Liver disorder [Unknown]

NARRATIVE: CASE EVENT DATE: 20230111
